FAERS Safety Report 6042728-6 (Version None)
Quarter: 2009Q1

REPORT INFORMATION
  Report Type: 
  Country: None (occurrence: None)
  Receive Date: 20090119
  Receipt Date: 20090109
  Transmission Date: 20090719
  Serious: Yes (Other)
  Sender: FDA-Public Use
  Company Number: CN-JNJFOC-20090102219

PATIENT
  Age: 33 Month
  Sex: Male
  Weight: 14 kg

DRUGS (2)
  1. ANTUSS INFANTS DECONGESTANT + COUGH [Suspect]
     Dosage: 9-10 ML ONCE, TOTAL
     Route: 048
  2. ANTUSS INFANTS DECONGESTANT + COUGH [Suspect]
     Indication: NASOPHARYNGITIS
     Dosage: AT 10:00
     Route: 048

REACTIONS (2)
  - ACCIDENTAL DRUG INTAKE BY CHILD [None]
  - ACCIDENTAL OVERDOSE [None]
